FAERS Safety Report 10056273 (Version 2)
Quarter: 2014Q2

REPORT INFORMATION
  Report Type: Spontaneous
  Country: JP (occurrence: JP)
  Receive Date: 20140403
  Receipt Date: 20140403
  Transmission Date: 20141212
  Serious: Yes (Hospitalization)
  Sender: FDA-Public Use
  Company Number: JP-MALLINCKRODT-T201401577

PATIENT
  Age: 56 Year
  Sex: Female

DRUGS (24)
  1. METHADONE [Suspect]
     Indication: CANCER PAIN
     Dosage: 5 MG, (15 MG DAILY DOSE)
     Route: 048
     Dates: start: 20140114, end: 20140120
  2. METHADONE [Suspect]
     Dosage: 10 MG, (20 MG DAILY DOSE)
     Route: 048
     Dates: start: 20140121, end: 20140129
  3. METHADONE [Suspect]
     Dosage: 15 MG, (30 MG DAILY DOSE)
     Route: 048
     Dates: start: 20140130, end: 20140204
  4. METHADONE [Suspect]
     Dosage: 20 MG, (40 MG DAILY DOSE)
     Route: 048
     Dates: start: 20140205
  5. OXINORM [Concomitant]
     Dosage: 30 MG, PRN
     Route: 048
     Dates: start: 20140113
  6. OXINORM [Concomitant]
     Dosage: 80 MG, UNK
     Route: 048
     Dates: start: 20140114
  7. FENTANYL [Concomitant]
     Dosage: 12.6 MG/3 DAYS
     Route: 062
  8. GABAPEN [Concomitant]
     Dosage: 600 MG, UNK
     Route: 048
     Dates: end: 20140115
  9. MEROPENEM [Concomitant]
     Dosage: 1 G, UNK
     Route: 051
     Dates: start: 20140118, end: 20140120
  10. ROCEPHIN [Concomitant]
     Dosage: 1 G, UNK
     Route: 051
     Dates: start: 20140121, end: 20140121
  11. ROCEPHIN [Concomitant]
     Dosage: 0.5 G, UNK
     Route: 051
     Dates: start: 20140121, end: 20140121
  12. MAGMITT [Concomitant]
     Dosage: 1980 MG, UNK
     Route: 048
  13. SEROQUEL [Concomitant]
     Dosage: 25 MG, UNK
     Route: 048
  14. CALONAL [Concomitant]
     Dosage: 2400 MG, UNK
     Route: 048
  15. GASTER [Concomitant]
     Dosage: 40 MG, UNK
     Route: 048
  16. FERROMIA [Concomitant]
     Dosage: 100 MG, UNK
     Route: 048
     Dates: end: 20140214
  17. CELECOX [Concomitant]
     Dosage: 200 MG, UNK
     Route: 048
  18. DEPAKENE-R [Concomitant]
     Dosage: 400 MG, UNK
     Route: 048
  19. MYSLEE [Concomitant]
     Dosage: 10 MG, UNK
     Route: 048
  20. GABALON [Concomitant]
     Dosage: 15 MG, UNK
     Route: 048
  21. LANDSEN [Concomitant]
     Dosage: 5 MG, UNK
     Route: 048
  22. AMOXAN [Concomitant]
     Dosage: 25 MG, UNK
     Route: 048
  23. CRAVIT [Concomitant]
     Dosage: 500 MG, UNK
     Route: 048
     Dates: start: 20140122, end: 20140203
  24. OXYCONTIN [Concomitant]
     Dosage: UNK

REACTIONS (2)
  - Bacteraemia [Recovered/Resolved]
  - Rhinorrhoea [Recovering/Resolving]
